FAERS Safety Report 23040357 (Version 1)
Quarter: 2023Q4

REPORT INFORMATION
  Report Type: Other
  Country: US (occurrence: US)
  Receive Date: 20231006
  Receipt Date: 20231006
  Transmission Date: 20240110
  Serious: Yes (Hospitalization)
  Sender: FDA-Public Use
  Company Number: US-TRAVERE-2023TVT00348

PATIENT
  Age: 11 Month
  Sex: Female

DRUGS (1)
  1. CHOLIC ACID [Suspect]
     Active Substance: CHOLIC ACID
     Indication: Congenital anomaly
     Route: 048
     Dates: start: 20230413

REACTIONS (2)
  - Adenovirus infection [Unknown]
  - Rhinovirus infection [Unknown]
